FAERS Safety Report 23614135 (Version 1)
Quarter: 2024Q1

REPORT INFORMATION
  Report Type: Report from Study
  Country: BE (occurrence: BE)
  Receive Date: 20240310
  Receipt Date: 20240310
  Transmission Date: 20240410
  Serious: Yes (Other)
  Sender: FDA-Public Use
  Company Number: BE-JNJFOC-20220126913

PATIENT
  Age: 86 Year
  Sex: Female

DRUGS (2)
  1. IBRUTINIB [Suspect]
     Active Substance: IBRUTINIB
     Indication: Waldenstrom^s macroglobulinaemia
     Route: 048
     Dates: start: 20180217, end: 20210930
  2. IBRUTINIB [Suspect]
     Active Substance: IBRUTINIB
     Indication: Waldenstrom^s macroglobulinaemia
     Route: 048
     Dates: start: 20211006, end: 20211231

REACTIONS (5)
  - Squamous cell carcinoma [Recovered/Resolved]
  - Pruritus [Not Recovered/Not Resolved]
  - Oral infection [Recovered/Resolved]
  - Decreased appetite [Recovered/Resolved]
  - Weight decreased [Recovered/Resolved]

NARRATIVE: CASE EVENT DATE: 20210827
